FAERS Safety Report 7943895-7 (Version None)
Quarter: 2011Q4

REPORT INFORMATION
  Report Type: 
  Country: None (occurrence: None)
  Receive Date: 20111128
  Receipt Date: 20111123
  Transmission Date: 20120403
  Serious: Yes (Other)
  Sender: FDA-Public Use
  Company Number: US-ROCHE-786630

PATIENT
  Sex: Female
  Weight: 59.02 kg

DRUGS (1)
  1. ACCUTANE [Suspect]
     Indication: ACNE
     Route: 065
     Dates: start: 20080701, end: 20081101

REACTIONS (5)
  - COLITIS [None]
  - EMOTIONAL DISTRESS [None]
  - ANAL HAEMORRHAGE [None]
  - COLITIS ULCERATIVE [None]
  - INSOMNIA [None]
